FAERS Safety Report 9907542 (Version 1)
Quarter: 2014Q1

REPORT INFORMATION
  Report Type: Spontaneous
  Country: IN (occurrence: IN)
  Receive Date: 20140218
  Receipt Date: 20140218
  Transmission Date: 20141002
  Serious: Yes (Other)
  Sender: FDA-Public Use
  Company Number: IN-BAXTER-2014BAX007172

PATIENT
  Age: 23 Year
  Sex: Female

DRUGS (6)
  1. HUMAN IMMUNOGLOBULIN IVIG, TRIPLE VIRALLY REDUCED (TVR) SOLUTION FOR I [Suspect]
     Indication: THROMBOCYTOPENIC PURPURA
     Dosage: 2 DOSES OF 1 G/KG ALTERNATE DAYS AT 21 WEEKS PERIOD GESTATION
     Route: 042
  2. PREDNISOLONE [Concomitant]
     Indication: PRODUCT USED FOR UNKNOWN INDICATION
     Route: 065
  3. PREDNISOLONE [Concomitant]
  4. PREDNISOLONE [Concomitant]
  5. INSULIN [Concomitant]
     Indication: GESTATIONAL DIABETES
     Route: 065
  6. OXYTOCIN [Concomitant]
     Indication: PRODUCT USED FOR UNKNOWN INDICATION
     Route: 042

REACTIONS (4)
  - Thrombocytopenia [Unknown]
  - Gestational diabetes [Unknown]
  - Preterm premature rupture of membranes [Unknown]
  - Exposure during pregnancy [Unknown]
